FAERS Safety Report 8552263-9 (Version None)
Quarter: 2012Q3

REPORT INFORMATION
  Report Type: 
  Country: None (occurrence: None)
  Receive Date: 20120723
  Receipt Date: 20120723
  Transmission Date: 20120928
  Serious: Yes (Life-Threatening, Other)
  Sender: FDA-Public Use
  Company Number: None

PATIENT
  Age: 51 Year
  Sex: Female
  Weight: 86.1834 kg

DRUGS (1)
  1. CEFUROXIME AXETIL [Suspect]
     Indication: SINUSITIS
     Dosage: 250MG 2 X DAY PO
     Route: 048
     Dates: start: 20120712, end: 20120718

REACTIONS (2)
  - DRUG HYPERSENSITIVITY [None]
  - DIZZINESS [None]
